FAERS Safety Report 10201155 (Version 4)
Quarter: 2017Q1

REPORT INFORMATION
  Report Type: Spontaneous
  Country: US (occurrence: US)
  Receive Date: 20140528
  Receipt Date: 20170201
  Transmission Date: 20170428
  Serious: Yes (Other)
  Sender: FDA-Public Use
  Company Number: US-BAYER-2013-138147

PATIENT
  Sex: Female

DRUGS (2)
  1. MIRENA [Suspect]
     Active Substance: LEVONORGESTREL
     Indication: CONTRACEPTION
     Dosage: 20 ?G/D, CONT
     Route: 015
     Dates: start: 201208, end: 201301
  2. MIRENA [Suspect]
     Active Substance: LEVONORGESTREL
     Indication: CONTRACEPTION
     Dosage: 20 ?G/D, CONT
     Route: 015
     Dates: start: 2006

REACTIONS (24)
  - Pelvic pain [Not Recovered/Not Resolved]
  - Pain [Unknown]
  - Epstein-Barr virus infection [Unknown]
  - Malaise [Unknown]
  - Cytomegalovirus infection [Unknown]
  - Weight increased [Unknown]
  - Allergy to metals [Unknown]
  - Genital haemorrhage [Unknown]
  - Uterine pain [Unknown]
  - Adenomyosis [Unknown]
  - Procedural pain [Unknown]
  - Abdominal pain [None]
  - Abdominal distension [Unknown]
  - Scar [Unknown]
  - Hypersensitivity [Unknown]
  - Inflammation [Unknown]
  - Adnexa uteri pain [Unknown]
  - Pneumonia [Unknown]
  - Herpes virus infection [Unknown]
  - Fatigue [Unknown]
  - Bronchitis [Unknown]
  - Ear infection [Unknown]
  - Autoimmune disorder [Unknown]
  - Complication of device insertion [Unknown]
